FAERS Safety Report 8118532-1 (Version None)
Quarter: 2012Q1

REPORT INFORMATION
  Report Type: 
  Country: None (occurrence: None)
  Receive Date: 20120202
  Receipt Date: 20120120
  Transmission Date: 20120608
  Serious: Yes (Life-Threatening, Hospitalization, Other)
  Sender: FDA-Public Use
  Company Number: 2012MA000942

PATIENT
  Sex: Male
  Weight: 117 kg

DRUGS (15)
  1. PLAVIX [Concomitant]
  2. ASPIRIN [Concomitant]
  3. GLYBURIDE [Concomitant]
  4. LOPRESSOR [Concomitant]
  5. POTASSIUM [Concomitant]
  6. APAP TAB [Concomitant]
  7. DIGOXIN [Suspect]
     Indication: PRODUCT USED FOR UNKNOWN INDICATION
     Dosage: 0.25 MG; QD; PO
     Route: 048
  8. DIOVAN [Concomitant]
  9. LIPITOR [Concomitant]
  10. METFORMIN HCL [Concomitant]
  11. PEPCID [Concomitant]
  12. TRIAMTERENE [Concomitant]
  13. M.V.I. [Concomitant]
  14. PRILOSEC [Concomitant]
  15. HYDROCHLOROTHIAZIDE [Concomitant]

REACTIONS (27)
  - CORONARY ARTERY DISEASE [None]
  - HYPOKALAEMIA [None]
  - CAROTID BRUIT [None]
  - TACHYCARDIA [None]
  - TYPE 2 DIABETES MELLITUS [None]
  - CORONARY ARTERY OCCLUSION [None]
  - CARDIAC FAILURE CONGESTIVE [None]
  - MYOCARDIAL INFARCTION [None]
  - WEIGHT INCREASED [None]
  - PANCREATITIS [None]
  - OBESITY [None]
  - CHEST PAIN [None]
  - TOXICITY TO VARIOUS AGENTS [None]
  - NAUSEA [None]
  - ARTERIOSCLEROSIS [None]
  - ANGINA PECTORIS [None]
  - NEUROMYOPATHY [None]
  - DISEASE RECURRENCE [None]
  - ABDOMINAL PAIN [None]
  - ACUTE RESPIRATORY DISTRESS SYNDROME [None]
  - CHOLELITHIASIS [None]
  - ANGINA UNSTABLE [None]
  - HYPOPHOSPHATAEMIA [None]
  - ENCEPHALOPATHY [None]
  - AMYLASE INCREASED [None]
  - ACUTE CORONARY SYNDROME [None]
  - VASCULAR GRAFT OCCLUSION [None]
